FAERS Safety Report 6015440-7 (Version None)
Quarter: 2008Q4

REPORT INFORMATION
  Report Type: 
  Country: None (occurrence: None)
  Receive Date: 20081222
  Receipt Date: 20081212
  Transmission Date: 20090506
  Serious: Yes (Other)
  Sender: FDA-Public Use
  Company Number: PHEH2008US10129

PATIENT
  Age: 8 Year
  Sex: Female

DRUGS (1)
  1. FOCALIN XR [Suspect]
     Dosage: 10 MG, UNK
     Route: 048
     Dates: start: 20081001, end: 20081001

REACTIONS (4)
  - AGGRESSION [None]
  - ANGER [None]
  - FEELING JITTERY [None]
  - ILLUSION [None]
